FAERS Safety Report 20992793 (Version 1)
Quarter: 2022Q2

REPORT INFORMATION
  Report Type: Spontaneous
  Country: US (occurrence: US)
  Receive Date: 20220622
  Receipt Date: 20220622
  Transmission Date: 20220721
  Serious: Yes (Hospitalization, Other)
  Sender: FDA-Public Use
  Company Number: US-PFIZER INC-202200861793

PATIENT
  Age: 58 Year
  Sex: Female

DRUGS (4)
  1. ESTRADIOL [Suspect]
     Active Substance: ESTRADIOL
     Indication: Aptyalism
     Dosage: UNK
  2. OMEPRAZOLE [Suspect]
     Active Substance: OMEPRAZOLE
     Indication: Aptyalism
     Dosage: UNK
  3. OXYBUTYNIN [Suspect]
     Active Substance: OXYBUTYNIN
     Indication: Aptyalism
     Dosage: UNK
  4. VORTIOXETINE [Suspect]
     Active Substance: VORTIOXETINE
     Indication: Aptyalism
     Dosage: UNK

REACTIONS (1)
  - Dry mouth [Unknown]
